FAERS Safety Report 16419374 (Version 2)
Quarter: 2019Q3

REPORT INFORMATION
  Report Type: Report from Study
  Country: US (occurrence: US)
  Receive Date: 20190612
  Receipt Date: 20190815
  Transmission Date: 20191004
  Serious: Yes (Hospitalization, Other)
  Sender: FDA-Public Use
  Company Number: US-BIOGEN-2019BI00721513

PATIENT
  Age: 69 Year
  Sex: Male

DRUGS (1)
  1. TYSABRI [Suspect]
     Active Substance: NATALIZUMAB
     Indication: MULTIPLE SCLEROSIS
     Dosage: INFUSED OVER 1 HOUR
     Route: 065
     Dates: start: 20171128, end: 20181109

REACTIONS (6)
  - Drug ineffective [Unknown]
  - Urosepsis [Recovered/Resolved]
  - Hepatitis [Unknown]
  - Multiple sclerosis relapse [Unknown]
  - Confusional state [Unknown]
  - Urinary retention [Unknown]

NARRATIVE: CASE EVENT DATE: 20190403
